FAERS Safety Report 7973004-X (Version None)
Quarter: 2011Q4

REPORT INFORMATION
  Report Type: 
  Country: None (occurrence: None)
  Receive Date: 20111213
  Receipt Date: 20111207
  Transmission Date: 20120403
  Serious: Yes (Death)
  Sender: FDA-Public Use
  Company Number: US-PFIZER INC-2011298916

PATIENT
  Sex: Male

DRUGS (11)
  1. MEGACE [Concomitant]
  2. PROCHLORPERAZINE [Concomitant]
  3. AMLODIPINE [Concomitant]
  4. FENTANYL [Concomitant]
  5. SENNA [Concomitant]
  6. LOVENOX [Concomitant]
  7. PREDNISONE [Concomitant]
  8. XALKORI [Suspect]
     Indication: LUNG NEOPLASM MALIGNANT
     Dosage: 250 MG, 2X/DAY
     Route: 048
     Dates: start: 20111101, end: 20111101
  9. MORPHINE [Concomitant]
  10. METOCLOPRAMIDE [Concomitant]
  11. CITALOPRAM [Concomitant]

REACTIONS (1)
  - DEATH [None]
